FAERS Safety Report 13534419 (Version 1)
Quarter: 2017Q2

REPORT INFORMATION
  Report Type: Spontaneous
  Country: US (occurrence: US)
  Receive Date: 20170510
  Receipt Date: 20170510
  Transmission Date: 20170830
  Serious: Yes (Other)
  Sender: FDA-Public Use
  Company Number: None

PATIENT
  Age: 61 Year
  Sex: Female

DRUGS (1)
  1. IBRANCE [Suspect]
     Active Substance: PALBOCICLIB
     Indication: BREAST CANCER
     Dosage: 100MG DAILY FOR 21 DAYS PO
     Route: 048
     Dates: start: 20170309

REACTIONS (2)
  - Hepatic enzyme increased [None]
  - Oropharyngeal pain [None]

NARRATIVE: CASE EVENT DATE: 20170417
